FAERS Safety Report 19872347 (Version 1)
Quarter: 2021Q3

REPORT INFORMATION
  Report Type: Spontaneous
  Country: US (occurrence: US)
  Receive Date: 20210923
  Receipt Date: 20210923
  Transmission Date: 20211014
  Serious: No
  Sender: FDA-Public Use
  Company Number: US-BAYER-2021-213629

PATIENT
  Age: 31 Year
  Sex: Female

DRUGS (1)
  1. MIRENA [Suspect]
     Active Substance: LEVONORGESTREL
     Indication: ENDOMETRIOSIS
     Dosage: 20 ?G, CONT
     Route: 015
     Dates: start: 20191226

REACTIONS (10)
  - Acne [Not Recovered/Not Resolved]
  - Off label use of device [None]
  - Abdominal pain lower [Not Recovered/Not Resolved]
  - Vaginal odour [Not Recovered/Not Resolved]
  - Device use issue [None]
  - Headache [Not Recovered/Not Resolved]
  - Vaginal discharge [Not Recovered/Not Resolved]
  - Hyperhidrosis [Not Recovered/Not Resolved]
  - Device use issue [None]
  - Weight increased [Not Recovered/Not Resolved]

NARRATIVE: CASE EVENT DATE: 20191226
